FAERS Safety Report 17100337 (Version 2)
Quarter: 2019Q4

REPORT INFORMATION
  Report Type: Spontaneous
  Country: DE (occurrence: DE)
  Receive Date: 20191202
  Receipt Date: 20191205
  Transmission Date: 20200122
  Serious: Yes (Hospitalization)
  Sender: FDA-Public Use
  Company Number: DE-MYLANLABS-2019M1115703

PATIENT
  Age: 81 Year
  Sex: Male

DRUGS (4)
  1. TORASEMIDE [Suspect]
     Active Substance: TORSEMIDE
     Indication: PRODUCT USED FOR UNKNOWN INDICATION
     Dosage: NK MG, NK
  2. CANDESARTAN. [Concomitant]
     Active Substance: CANDESARTAN
     Dosage: NK MG, NK
  3. THEOPHYLLIN [Concomitant]
     Active Substance: THEOPHYLLINE ANHYDROUS
     Dosage: NK MG, NK
  4. TROSPIUM [Concomitant]
     Active Substance: TROSPIUM
     Dosage: 30 MILLIGRAM, NK

REACTIONS (2)
  - Product administration error [Unknown]
  - Hyponatraemia [Unknown]

NARRATIVE: CASE EVENT DATE: 20170108
